FAERS Safety Report 20225187 (Version 2)
Quarter: 2022Q1

REPORT INFORMATION
  Report Type: Spontaneous
  Country: US (occurrence: US)
  Receive Date: 20211223
  Receipt Date: 20220328
  Transmission Date: 20220423
  Serious: No
  Sender: FDA-Public Use
  Company Number: US-JNJFOC-20211225893

PATIENT
  Age: 75 Year
  Sex: Female
  Weight: 66.738 kg

DRUGS (2)
  1. STELARA [Suspect]
     Active Substance: USTEKINUMAB
     Indication: Crohn^s disease
     Route: 058
     Dates: start: 20211012
  2. GATTEX [Concomitant]
     Active Substance: TEDUGLUTIDE\WATER
     Indication: Crohn^s disease

REACTIONS (3)
  - Underdose [Unknown]
  - Off label use [Unknown]
  - Inappropriate schedule of product administration [Unknown]

NARRATIVE: CASE EVENT DATE: 20211201
